FAERS Safety Report 5924649-X (Version None)
Quarter: 2008Q4

REPORT INFORMATION
  Report Type: 
  Country: None (occurrence: None)
  Receive Date: 20081020
  Receipt Date: 20081013
  Transmission Date: 20090506
  Serious: Yes (Other)
  Sender: FDA-Public Use
  Company Number: US-GENENTECH-268909

PATIENT
  Sex: Female
  Weight: 78.458 kg

DRUGS (13)
  1. XOLAIR [Suspect]
     Indication: ASTHMA
     Dosage: 300 MG, Q2W
     Route: 058
     Dates: start: 20080805, end: 20080819
  2. MONTELUKAST SODIUM [Concomitant]
     Indication: ASTHMA
     Dosage: 10 MG, QD
     Route: 048
     Dates: start: 20050717
  3. MONTELUKAST SODIUM [Concomitant]
     Indication: HYPERSENSITIVITY
  4. ADVAIR DISKUS 100/50 [Concomitant]
     Indication: ASTHMA
     Dosage: 1 PUFF, BID
     Route: 055
     Dates: start: 20050502
  5. CITRACAL + D [Concomitant]
     Indication: MEDICAL DIET
     Dosage: UNK
     Route: 048
  6. TYLENOL (CAPLET) [Concomitant]
     Indication: PAIN
     Dosage: 500 MG, PRN
     Route: 048
  7. ALBUTEROL [Concomitant]
     Indication: ASTHMA
     Dosage: 90 A?G, PRN
     Route: 055
  8. PRILOSEC [Concomitant]
     Indication: GASTROOESOPHAGEAL REFLUX DISEASE
     Dosage: 20 MG, BID
     Route: 048
  9. FLEXERIL [Concomitant]
     Indication: BACK PAIN
     Dosage: 10 MG, PRN
     Route: 048
     Dates: start: 20070621, end: 20080702
  10. LISINOPRIL [Concomitant]
     Indication: HYPERTENSION
     Dosage: 20 MG, QD
     Route: 048
     Dates: start: 20070625, end: 20080902
  11. PULMICORT-100 [Concomitant]
     Indication: ASTHMA
     Dosage: 0.5 MG, PRN
     Route: 055
     Dates: start: 20070612, end: 20070702
  12. PREMPRO [Concomitant]
     Indication: DRUG USE FOR UNKNOWN INDICATION
     Dosage: UNK
     Route: 048
     Dates: start: 20060329, end: 20080902
  13. FLONASE [Concomitant]
     Indication: HYPERSENSITIVITY
     Dosage: 50 A?G, QD
     Route: 045
     Dates: start: 20061110, end: 20080702

REACTIONS (4)
  - ANAPHYLACTIC REACTION [None]
  - BRONCHOSPASM [None]
  - PRURITUS [None]
  - URTICARIA [None]
